FAERS Safety Report 23902229 (Version 1)
Quarter: 2024Q2

REPORT INFORMATION
  Report Type: Spontaneous
  Country: US (occurrence: None)
  Receive Date: 20240527
  Receipt Date: 20240527
  Transmission Date: 20240716
  Serious: No
  Sender: FDA-Public Use
  Company Number: US-ROCHE-3356897

PATIENT
  Sex: Female

DRUGS (4)
  1. ACTEMRA [Suspect]
     Active Substance: TOCILIZUMAB
     Indication: Rheumatoid arthritis
     Dosage: STRENGTH: 162MG/0.9M
     Route: 058
     Dates: start: 202303
  2. ACTEMRA [Suspect]
     Active Substance: TOCILIZUMAB
  3. OFEV [Concomitant]
     Active Substance: NINTEDANIB
     Indication: Pulmonary fibrosis
  4. OFEV [Concomitant]
     Active Substance: NINTEDANIB
     Indication: Interstitial lung disease

REACTIONS (6)
  - Nausea [Unknown]
  - Vomiting [Unknown]
  - Diarrhoea [Unknown]
  - Abdominal pain upper [Unknown]
  - Weight increased [Unknown]
  - Blood cholesterol increased [Unknown]
